FAERS Safety Report 4895839-2 (Version None)
Quarter: 2006Q1

REPORT INFORMATION
  Report Type: 
  Country: None (occurrence: None)
  Receive Date: 20060125
  Receipt Date: 20060112
  Transmission Date: 20060701
  Serious: Yes (Hospitalization, Other)
  Sender: FDA-Public Use
  Company Number: 2006008884

PATIENT
  Age: 45 Year
  Sex: Male

DRUGS (6)
  1. ARTHROTEC [Suspect]
     Indication: BACK PAIN
     Dosage: ORAL
     Route: 048
     Dates: start: 20051102, end: 20051108
  2. MYOLASTAN (TETRAZEPAM) [Concomitant]
  3. KETOPROFEN [Concomitant]
  4. SPASFON (PHLOROGLUCINOL, TRIMETHYLPHLOROGLUCINOL) [Concomitant]
  5. VOLTAREN [Concomitant]
  6. ACETAMINOPHEN [Concomitant]

REACTIONS (10)
  - ANGIONEUROTIC OEDEMA [None]
  - CHILLS [None]
  - CHOLESTASIS [None]
  - CYTOLYTIC HEPATITIS [None]
  - DRUG RASH WITH EOSINOPHILIA AND SYSTEMIC SYMPTOMS [None]
  - LUNG DISORDER [None]
  - LYMPHADENOPATHY [None]
  - LYMPHOPENIA [None]
  - RENAL FAILURE [None]
  - TOXIC SKIN ERUPTION [None]
